FAERS Safety Report 23782959 (Version 1)
Quarter: 2024Q2

REPORT INFORMATION
  Report Type: Spontaneous
  Country: CN (occurrence: CN)
  Receive Date: 20240425
  Receipt Date: 20240425
  Transmission Date: 20240716
  Serious: Yes (Life-Threatening, Other)
  Sender: FDA-Public Use
  Company Number: CN-IGSA-BIG0028566

PATIENT
  Age: 44 Year
  Sex: Male
  Weight: 60 kg

DRUGS (1)
  1. HUMAN ALBUMIN GRIFOLS 20% [Suspect]
     Active Substance: ALBUMIN HUMAN
     Indication: Shock haemorrhagic
     Dosage: 20 GRAM, SINGLE
     Route: 042
     Dates: start: 20240331, end: 20240331

REACTIONS (2)
  - Rash erythematous [Recovered/Resolved]
  - Oxygen saturation decreased [Recovered/Resolved]

NARRATIVE: CASE EVENT DATE: 20240331
